FAERS Safety Report 9560374 (Version 1)
Quarter: 2013Q3

REPORT INFORMATION
  Report Type: Spontaneous
  Country: US (occurrence: None)
  Receive Date: 20130906
  Receipt Date: 20130906
  Transmission Date: 20140515
  Serious: Yes (Other)
  Sender: FDA-Public Use
  Company Number: 163-POMAL-13050315

PATIENT
  Age: 80 Year
  Sex: Male

DRUGS (11)
  1. POMALYST [Suspect]
     Indication: PLASMA CELL MYELOMA
     Dosage: 4 MG, CAPSULE, 21 IN 28 D, PO
     Dates: start: 20130314
  2. VITAMIN B12 (CYANOCOBALAMIN) [Concomitant]
  3. ASPIRIN (ACETYLSALICYLIC ACID) [Concomitant]
  4. COREG (CARVEDILOL) [Concomitant]
  5. LACTULOSE [Concomitant]
  6. CYMBALTA (DULOXETINE HYDROCHLORIDE) [Concomitant]
  7. FUROSEMIDE [Concomitant]
  8. DEXAMETHASONE [Concomitant]
  9. LIPITOR (ATORVASTATIN) [Concomitant]
  10. ACYCLOVIR [Concomitant]
  11. PLAVIX (CLOPIDOGREL SULFATE) [Concomitant]

REACTIONS (3)
  - Anaemia [None]
  - Oedema peripheral [None]
  - Neuropathy peripheral [None]
